FAERS Safety Report 5055373-6 (Version None)
Quarter: 2006Q3

REPORT INFORMATION
  Report Type: 
  Country: None (occurrence: None)
  Receive Date: 20060718
  Receipt Date: 20060718
  Transmission Date: 20061208
  Serious: Yes (Hospitalization)
  Sender: FDA-Public Use
  Company Number: None

PATIENT
  Age: 40 Year
  Sex: Male

DRUGS (5)
  1. IBUPROFEN [Suspect]
     Indication: PAIN
     Dosage: 800 MG TID
  2. PAROXETINE HCL [Concomitant]
  3. ZOLMITRIPTAN [Concomitant]
  4. CYCLOBENZAPRINE HCL [Concomitant]
  5. LORATADINE [Concomitant]

REACTIONS (1)
  - DUODENITIS [None]
